FAERS Safety Report 24691595 (Version 1)
Quarter: 2024Q4

REPORT INFORMATION
  Report Type: Spontaneous
  Country: CN (occurrence: CN)
  Receive Date: 20241203
  Receipt Date: 20241203
  Transmission Date: 20250115
  Serious: Yes (Hospitalization)
  Sender: BAYER HEALTHCARE PHARMACEUTICALS INC.
  Company Number: CN-BAYER-2024A167280

PATIENT
  Age: 76 Year
  Sex: Male
  Weight: 58 kg

DRUGS (2)
  1. KOVALTRY [Suspect]
     Active Substance: ANTIHEMOPHILIC FACTOR, HUMAN RECOMBINANT
     Dosage: UNK
     Dates: start: 20241026
  2. SINTILIMAB [Concomitant]
     Active Substance: SINTILIMAB
     Dosage: 200 MG, QD
     Route: 041
     Dates: start: 20241026

REACTIONS (3)
  - Hepatic function abnormal [Recovering/Resolving]
  - Respiratory rate increased [None]
  - Blood pressure systolic increased [None]

NARRATIVE: CASE EVENT DATE: 20241115
